FAERS Safety Report 25462810 (Version 13)
Quarter: 2025Q4

REPORT INFORMATION
  Report Type: Spontaneous
  Country: US (occurrence: US)
  Receive Date: 20250620
  Receipt Date: 20251006
  Transmission Date: 20260118
  Serious: No
  Sender: BIOGEN
  Company Number: US-BIOGEN-2024BI01255305

PATIENT
  Age: 51 Year
  Sex: Female

DRUGS (3)
  1. TYSABRI [Suspect]
     Active Substance: NATALIZUMAB
     Indication: Multiple sclerosis
     Route: 050
     Dates: start: 20110119, end: 20111031
  2. TYSABRI [Suspect]
     Active Substance: NATALIZUMAB
     Dosage: CURRENT REGIMEN
     Route: 050
     Dates: start: 20071205, end: 20100824
  3. TYSABRI [Suspect]
     Active Substance: NATALIZUMAB
     Route: 050
     Dates: start: 20151005

REACTIONS (18)
  - Prescribed underdose [Recovered/Resolved]
  - Product dose omission issue [Unknown]
  - Pain [Not Recovered/Not Resolved]
  - Withdrawal syndrome [Unknown]
  - Muscular weakness [Unknown]
  - Gait disturbance [Unknown]
  - Burning sensation [Unknown]
  - Hyperhidrosis [Unknown]
  - General physical health deterioration [Unknown]
  - Musculoskeletal disorder [Unknown]
  - Decreased immune responsiveness [Unknown]
  - Fatigue [Not Recovered/Not Resolved]
  - Arthralgia [Unknown]
  - Chills [Unknown]
  - Feeling cold [Unknown]
  - Anxiety [Unknown]
  - Dyspnoea [Unknown]
  - Cardiac disorder [Unknown]

NARRATIVE: CASE EVENT DATE: 20071205
